FAERS Safety Report 21030835 (Version 1)
Quarter: 2022Q3

REPORT INFORMATION
  Report Type: Spontaneous
  Country: US (occurrence: None)
  Receive Date: 20220701
  Receipt Date: 20220701
  Transmission Date: 20221027
  Serious: No
  Sender: FDA-Public Use
  Company Number: US-ROCHE-3008086

PATIENT
  Age: 75 Year
  Sex: Female
  Weight: 54.480 kg

DRUGS (7)
  1. ACTEMRA [Suspect]
     Active Substance: TOCILIZUMAB
     Indication: Polymyalgia rheumatica
     Dosage: EXPIRY DATE: 31/AUG/2023
     Route: 058
     Dates: start: 20211216
  2. ACTEMRA [Suspect]
     Active Substance: TOCILIZUMAB
  3. ACTEMRA [Suspect]
     Active Substance: TOCILIZUMAB
     Route: 058
     Dates: start: 20211210
  4. ACTEMRA [Suspect]
     Active Substance: TOCILIZUMAB
  5. ACTEMRA [Suspect]
     Active Substance: TOCILIZUMAB
     Indication: Polymyalgia rheumatica
     Dosage: (STRENGTH:162MG/0.9M)
     Route: 058
     Dates: start: 20220215
  6. ACTEMRA [Suspect]
     Active Substance: TOCILIZUMAB
  7. ELIQUIS [Concomitant]
     Active Substance: APIXABAN
     Indication: Anticoagulant therapy
     Dosage: TWICE A DAY ;ONGOING: YES

REACTIONS (9)
  - Injury associated with device [Unknown]
  - Device difficult to use [Unknown]
  - Haemorrhage [Recovered/Resolved]
  - Erythema [Unknown]
  - Off label use [Unknown]
  - Hypertension [Unknown]
  - Injection site pain [Unknown]
  - Device delivery system issue [Unknown]
  - Underdose [Unknown]

NARRATIVE: CASE EVENT DATE: 20220120
